FAERS Safety Report 9425114 (Version 1)
Quarter: 2013Q3

REPORT INFORMATION
  Report Type: Spontaneous
  Country: NO (occurrence: NO)
  Receive Date: 20130729
  Receipt Date: 20130729
  Transmission Date: 20140515
  Serious: Yes (Hospitalization, Other)
  Sender: FDA-Public Use
  Company Number: NO-JNJFOC-20130714393

PATIENT
  Age: 61 Year
  Sex: Male

DRUGS (5)
  1. XARELTO [Suspect]
     Indication: CEREBROVASCULAR ACCIDENT PROPHYLAXIS
     Route: 048
     Dates: start: 20130201, end: 20130628
  2. XARELTO [Suspect]
     Indication: ATRIAL FIBRILLATION
     Route: 048
     Dates: start: 20130201, end: 20130628
  3. LIPITOR [Concomitant]
     Route: 048
  4. METOPROLOL [Concomitant]
     Route: 048
  5. NORVASC [Concomitant]
     Route: 048

REACTIONS (2)
  - Cognitive disorder [Not Recovered/Not Resolved]
  - Fatigue [Not Recovered/Not Resolved]
